FAERS Safety Report 13474576 (Version 1)
Quarter: 2017Q2

REPORT INFORMATION
  Report Type: Spontaneous
  Country: GB (occurrence: GB)
  Receive Date: 20170424
  Receipt Date: 20170424
  Transmission Date: 20170830
  Serious: Yes (Hospitalization)
  Sender: FDA-Public Use
  Company Number: PHFR2017GB002700

PATIENT
  Weight: 2.88 kg

DRUGS (1)
  1. QUETIAPINE. [Suspect]
     Active Substance: QUETIAPINE
     Indication: FOETAL EXPOSURE DURING PREGNANCY
     Dosage: MATERNAL DOSE: 600MG
     Route: 064

REACTIONS (5)
  - Withdrawal syndrome [Unknown]
  - Poor feeding infant [Recovering/Resolving]
  - Irritability [Recovering/Resolving]
  - Low birth weight baby [Recovering/Resolving]
  - Agitation [Recovering/Resolving]
